FAERS Safety Report 4828159-2 (Version None)
Quarter: 2005Q4

REPORT INFORMATION
  Report Type: 
  Country: None (occurrence: None)
  Receive Date: 20051115
  Receipt Date: 20050415
  Transmission Date: 20060501
  Serious: Yes (Hospitalization)
  Sender: FDA-Public Use
  Company Number: US-GLAXOSMITHKLINE-A0554406A

PATIENT
  Age: 54 Year
  Sex: Female
  Weight: 122.7 kg

DRUGS (2)
  1. LAMICTAL [Suspect]
     Indication: BIPOLAR DISORDER
     Route: 048
     Dates: start: 20041008, end: 20041201
  2. CLINDAMYCIN [Suspect]
     Indication: DRUG USE FOR UNKNOWN INDICATION

REACTIONS (5)
  - HYPERSENSITIVITY [None]
  - LYMPH NODE ABSCESS [None]
  - RASH [None]
  - SKIN EXFOLIATION [None]
  - SWELLING [None]
